FAERS Safety Report 10387210 (Version 1)
Quarter: 2014Q3

REPORT INFORMATION
  Report Type: Spontaneous
  Country: US (occurrence: None)
  Receive Date: 20140814
  Receipt Date: 20140814
  Transmission Date: 20150326
  Serious: Yes (Other)
  Sender: FDA-Public Use
  Company Number: None

PATIENT
  Age: 61 Year
  Sex: Male
  Weight: 86.18 kg

DRUGS (13)
  1. ZYRTEC [Concomitant]
     Active Substance: CETIRIZINE HYDROCHLORIDE
  2. ASA [Concomitant]
     Active Substance: ASPIRIN
  3. LISINOPRIL. [Concomitant]
     Active Substance: LISINOPRIL
  4. MENS MVI FOR 50+ [Concomitant]
  5. BANANA BOAT SPORT PERFORMANCE (AVOBENZONE\HOMOSALATE\OCTOCRYLENE\OXYBENZONE) [Suspect]
     Active Substance: AVOBENZONE\HOMOSALATE\OCTOCRYLENE\OXYBENZONE
     Indication: PROPHYLAXIS AGAINST SOLAR RADIATION
     Route: 061
     Dates: start: 20140622, end: 20140622
  6. GLIPIZIDE. [Concomitant]
     Active Substance: GLIPIZIDE
  7. GLUCOSAMINE WITH MCM [Concomitant]
  8. VITAMIN E [Concomitant]
     Active Substance: .ALPHA.-TOCOPHEROL
  9. FISH OIL [Concomitant]
     Active Substance: FISH OIL
  10. METFORMIN [Concomitant]
     Active Substance: METFORMIN HYDROCHLORIDE
  11. PANTOPRAZOLE [Concomitant]
     Active Substance: PANTOPRAZOLE SODIUM
  12. COQ10 [Concomitant]
     Active Substance: UBIDECARENONE
  13. OCCIVOTE [Concomitant]

REACTIONS (2)
  - Application site swelling [None]
  - Application site rash [None]

NARRATIVE: CASE EVENT DATE: 20140622
